FAERS Safety Report 18665304 (Version 8)
Quarter: 2022Q3

REPORT INFORMATION
  Report Type: Report from Study
  Country: CA (occurrence: CA)
  Receive Date: 20201225
  Receipt Date: 20220917
  Transmission Date: 20221026
  Serious: Yes (Other)
  Sender: FDA-Public Use
  Company Number: CA-TAKEDA-2020TUS059484

PATIENT
  Age: 59 Year
  Sex: Female

DRUGS (16)
  1. VEDOLIZUMAB [Suspect]
     Active Substance: VEDOLIZUMAB
     Indication: Crohn^s disease
     Dosage: 300 MILLIGRAM
     Route: 042
     Dates: start: 20201201
  2. VEDOLIZUMAB [Suspect]
     Active Substance: VEDOLIZUMAB
     Dosage: 300 MILLIGRAM
     Route: 042
  3. VEDOLIZUMAB [Suspect]
     Active Substance: VEDOLIZUMAB
     Dosage: 300 MILLIGRAM, Q4WEEKS
     Route: 042
     Dates: start: 20210611
  4. VEDOLIZUMAB [Suspect]
     Active Substance: VEDOLIZUMAB
     Dosage: 300 MILLIGRAM, Q4WEEKS
     Route: 042
  5. VEDOLIZUMAB [Suspect]
     Active Substance: VEDOLIZUMAB
     Dosage: 300 MILLIGRAM, Q4WEEKS
     Route: 042
  6. ATENOLOL [Concomitant]
     Active Substance: ATENOLOL
     Dosage: UNK
  7. DITROPAN [Concomitant]
     Active Substance: OXYBUTYNIN CHLORIDE
     Dosage: UNK
  8. LEVOTHYROXINE [Concomitant]
     Active Substance: LEVOTHYROXINE
     Dosage: UNK
  9. FENTANYL [Concomitant]
     Active Substance: FENTANYL
     Dosage: UNK
  10. LYRICA [Concomitant]
     Active Substance: PREGABALIN
     Dosage: UNK
  11. IMOVANE [Concomitant]
     Active Substance: ZOPICLONE
     Dosage: UNK
  12. MACROBID [Concomitant]
     Active Substance: NITROFURANTOIN\NITROFURANTOIN MONOHYDRATE
     Dosage: UNK
  13. PANTOPRAZOLE SODIUM [Concomitant]
     Active Substance: PANTOPRAZOLE SODIUM
     Dosage: UNK
  14. TRENTAL [Concomitant]
     Active Substance: PENTOXIFYLLINE
     Dosage: UNK
  15. WARFARIN [Concomitant]
     Active Substance: WARFARIN
     Dosage: UNK
  16. Diazide [Concomitant]
     Dosage: UNK

REACTIONS (11)
  - Crohn^s disease [Recovered/Resolved]
  - Dysgeusia [Unknown]
  - Peripheral swelling [Unknown]
  - Malaise [Unknown]
  - Asthenia [Unknown]
  - Diarrhoea [Unknown]
  - Weight decreased [Unknown]
  - Abdominal distension [Unknown]
  - Fatigue [Unknown]
  - Therapeutic reaction time decreased [Unknown]
  - Off label use [Unknown]

NARRATIVE: CASE EVENT DATE: 20201201
